FAERS Safety Report 4853864-1 (Version None)
Quarter: 2005Q4

REPORT INFORMATION
  Report Type: 
  Country: None (occurrence: None)
  Receive Date: 20051213
  Receipt Date: 20051205
  Transmission Date: 20060501
  Serious: Yes (Other)
  Sender: FDA-Public Use
  Company Number: 2005164481

PATIENT
  Age: 22 Year
  Sex: Male
  Weight: 76.2043 kg

DRUGS (1)
  1. DRAMAMINE [Suspect]
     Dosage: 6 TO 7 TABLETS ONCE, ORAL
     Route: 048
     Dates: start: 20051205, end: 20051205

REACTIONS (4)
  - ABNORMAL BEHAVIOUR [None]
  - LOGORRHOEA [None]
  - OVERDOSE [None]
  - SOMNOLENCE [None]
